FAERS Safety Report 5641120-3 (Version None)
Quarter: 2008Q1

REPORT INFORMATION
  Report Type: 
  Country: None (occurrence: None)
  Receive Date: 20080227
  Receipt Date: 20070124
  Transmission Date: 20080703
  Serious: No
  Sender: FDA-Public Use
  Company Number: A0636617A

PATIENT
  Age: 20 Year
  Sex: Female

DRUGS (1)
  1. NICORETTE (MINT) [Suspect]
     Dates: start: 20070121, end: 20070121

REACTIONS (4)
  - ASTHENIA [None]
  - DIZZINESS [None]
  - MALAISE [None]
  - NAUSEA [None]
